FAERS Safety Report 13029500 (Version 6)
Quarter: 2018Q1

REPORT INFORMATION
  Report Type: Report from Study
  Country: None (occurrence: US)
  Receive Date: 20161215
  Receipt Date: 20180307
  Transmission Date: 20180508
  Serious: Yes (Other)
  Sender: FDA-Public Use
  Company Number: US-ABBVIE-16K-163-1802731-00

PATIENT
  Sex: Male

DRUGS (5)
  1. HUMIRA [Suspect]
     Active Substance: ADALIMUMAB
     Route: 058
     Dates: start: 201609
  2. MARIJUANA [Suspect]
     Active Substance: CANNABIS SATIVA SUBSP. INDICA TOP
     Indication: NAUSEA
     Route: 065
  3. HYDROCODONE [Concomitant]
     Active Substance: HYDROCODONE
     Indication: NECK PAIN
  4. HUMIRA [Suspect]
     Active Substance: ADALIMUMAB
     Indication: CROHN^S DISEASE
     Route: 058
     Dates: start: 201601, end: 201608
  5. TYLENOL [Concomitant]
     Active Substance: ACETAMINOPHEN
     Indication: PRODUCT USED FOR UNKNOWN INDICATION

REACTIONS (15)
  - Neck pain [Unknown]
  - Procedural pain [Unknown]
  - Drug abuse [Unknown]
  - Panic attack [Unknown]
  - Musculoskeletal stiffness [Unknown]
  - Crohn^s disease [Recovering/Resolving]
  - Impaired healing [Unknown]
  - Back pain [Unknown]
  - Pain in extremity [Unknown]
  - Hypophagia [Unknown]
  - Musculoskeletal pain [Unknown]
  - Intervertebral disc protrusion [Recovering/Resolving]
  - Joint range of motion decreased [Unknown]
  - Defaecation urgency [Unknown]
  - Malaise [Unknown]

NARRATIVE: CASE EVENT DATE: 2016
